FAERS Safety Report 9498844 (Version 1)
Quarter: 2013Q3

REPORT INFORMATION
  Report Type: Spontaneous
  Country: DE (occurrence: DE)
  Receive Date: 20130904
  Receipt Date: 20130904
  Transmission Date: 20140515
  Serious: Yes (Hospitalization)
  Sender: FDA-Public Use
  Company Number: DE-AMGEN-DEUSP2013061997

PATIENT
  Age: 69 Year
  Sex: Male

DRUGS (3)
  1. ENBREL [Suspect]
     Indication: ANKYLOSING SPONDYLITIS
     Dosage: 50 MG, WEEKLY
     Route: 065
     Dates: start: 20120509, end: 20130824
  2. IBUPROFEN [Concomitant]
     Dosage: 600 UNK, AS NEEDED
  3. DICLOFENAC [Concomitant]
     Dosage: 50 UNK, AS NEEDED

REACTIONS (1)
  - Arrhythmia [Not Recovered/Not Resolved]
